FAERS Safety Report 5872897-X (Version None)
Quarter: 2008Q3

REPORT INFORMATION
  Report Type: 
  Country: None (occurrence: None)
  Receive Date: 20080905
  Receipt Date: 20080826
  Transmission Date: 20090109
  Serious: Yes (Disabling)
  Sender: FDA-Public Use
  Company Number: GB-PFIZER INC-2008069492

PATIENT
  Sex: Male
  Weight: 120.7 kg

DRUGS (6)
  1. LYRICA [Suspect]
     Indication: NEURALGIA
     Route: 048
     Dates: start: 20080804, end: 20080819
  2. DICLOFENAC [Concomitant]
     Route: 048
  3. OMEPRAZOLE [Concomitant]
     Route: 048
  4. ACETYLSALICYLIC ACID SRT [Concomitant]
  5. ACETAMINOPHEN [Concomitant]
     Route: 048
  6. LISINOPRIL [Concomitant]
     Route: 048

REACTIONS (3)
  - FATIGUE [None]
  - MUSCULOSKELETAL STIFFNESS [None]
  - PAIN [None]
